FAERS Safety Report 5668804-5 (Version None)
Quarter: 2008Q1

REPORT INFORMATION
  Report Type: 
  Country: None (occurrence: None)
  Receive Date: 20080317
  Receipt Date: 20080312
  Transmission Date: 20080703
  Serious: No
  Sender: FDA-Public Use
  Company Number: US-BAYER-200812625NA

PATIENT
  Age: 35 Year
  Sex: Female

DRUGS (6)
  1. MIRENA [Suspect]
     Indication: MENORRHAGIA
     Route: 015
     Dates: start: 20070522, end: 20080113
  2. DARVOCET [Concomitant]
     Indication: PAIN
     Route: 048
  3. NAPROSYN [Concomitant]
     Route: 048
  4. ZYRTEC [Concomitant]
     Indication: MULTIPLE ALLERGIES
     Route: 048
  5. PROMETHAZINE [Concomitant]
     Indication: NAUSEA
  6. FLEXERIL [Concomitant]
     Indication: DRUG USE FOR UNKNOWN INDICATION

REACTIONS (2)
  - INTRA-UTERINE CONTRACEPTIVE DEVICE REMOVAL [None]
  - IUCD COMPLICATION [None]
